FAERS Safety Report 12490403 (Version 1)
Quarter: 2016Q2

REPORT INFORMATION
  Report Type: Report from Study
  Country: BR (occurrence: BR)
  Receive Date: 20160622
  Receipt Date: 20160622
  Transmission Date: 20160815
  Serious: Yes (Other)
  Sender: FDA-Public Use
  Company Number: PHHY2015BR162672

PATIENT
  Sex: Female
  Weight: 62 kg

DRUGS (3)
  1. EXJADE [Suspect]
     Active Substance: DEFERASIROX
     Indication: SICKLE CELL ANAEMIA
     Dosage: 1 DF OF 500 MG (10 MG/KG), QD
     Route: 048
  2. EXJADE [Suspect]
     Active Substance: DEFERASIROX
     Dosage: 1 DF OF 500 MG (10 MG/KG), QD
     Route: 048
     Dates: start: 201505
  3. HIDROXIUREA [Suspect]
     Active Substance: HYDROXYUREA
     Indication: PRODUCT USED FOR UNKNOWN INDICATION
     Route: 065

REACTIONS (5)
  - White blood cell count abnormal [Recovered/Resolved]
  - Nausea [Unknown]
  - Serum ferritin increased [Unknown]
  - Hepatitis C [Unknown]
  - Skin injury [Unknown]

NARRATIVE: CASE EVENT DATE: 2015
